FAERS Safety Report 18840651 (Version 3)
Quarter: 2021Q2

REPORT INFORMATION
  Report Type: Report from Study
  Country: US (occurrence: US)
  Receive Date: 20210203
  Receipt Date: 20210402
  Transmission Date: 20210717
  Serious: Yes (Other)
  Sender: FDA-Public Use
  Company Number: US-MYLANLABS-2021M1006247

PATIENT
  Sex: Female

DRUGS (3)
  1. AMNESTEEM [Suspect]
     Active Substance: ISOTRETINOIN
     Indication: PRODUCT USED FOR UNKNOWN INDICATION
     Dosage: 80 MILLIGRAM, QD
     Dates: start: 20200828, end: 20210126
  2. CLARAVIS [Concomitant]
     Active Substance: ISOTRETINOIN
     Dosage: UNK
  3. CLARAVIS [Concomitant]
     Active Substance: ISOTRETINOIN
     Dosage: UNK

REACTIONS (1)
  - Maternal exposure during pregnancy [Unknown]
